FAERS Safety Report 10350224 (Version 1)
Quarter: 2014Q3

REPORT INFORMATION
  Report Type: Spontaneous
  Country: CA (occurrence: None)
  Receive Date: 20140728
  Receipt Date: 20140728
  Transmission Date: 20150326
  Serious: Yes (Hospitalization)
  Sender: FDA-Public Use
  Company Number: None

PATIENT
  Age: 44 Year
  Sex: Female
  Weight: 56.7 kg

DRUGS (1)
  1. NICODERM CQ [Suspect]
     Active Substance: NICOTINE
     Indication: SMOKING CESSATION THERAPY
     Dosage: ONE PATCH Q24HRS ONCE DAILY APPLIED AS MEDICATED PATCH TO SKIN
     Route: 061
     Dates: start: 20140724

REACTIONS (8)
  - Muscular weakness [None]
  - Tremor [None]
  - Nausea [None]
  - Chills [None]
  - Headache [None]
  - Vomiting [None]
  - Disorientation [None]
  - Confusional state [None]

NARRATIVE: CASE EVENT DATE: 20140724
